FAERS Safety Report 8371510-X (Version None)
Quarter: 2012Q2

REPORT INFORMATION
  Report Type: 
  Country: None (occurrence: None)
  Receive Date: 20120518
  Receipt Date: 20120511
  Transmission Date: 20120825
  Serious: Yes (Other)
  Sender: FDA-Public Use
  Company Number: US-PFIZER INC-2012116877

PATIENT
  Age: 68 Year
  Sex: Female
  Weight: 84 kg

DRUGS (23)
  1. TRIAMTERENE AND HYDROCHLOROTHIAZIDE [Concomitant]
     Dosage: UNK
  2. PROPOFOL [Concomitant]
     Dosage: 200 MG, UNK
  3. SUCCINYLCHOLINE CHLORIDE [Concomitant]
     Dosage: 120 MG, UNK
  4. OMEPRAZOLE [Concomitant]
     Dosage: UNK
  5. GABITRIL [Concomitant]
     Dosage: UNK
  6. FOSAMAX [Concomitant]
     Dosage: UNK
  7. SENNA [Concomitant]
     Dosage: UNK
  8. CALCIUM [Concomitant]
     Dosage: UNK
  9. GABAPENTIN [Concomitant]
     Dosage: UNK
  10. LISINOPRIL [Concomitant]
     Dosage: UNK
  11. OXYCODONE [Concomitant]
     Dosage: UNK
  12. LIPITOR [Concomitant]
     Dosage: UNK
  13. FENTANYL [Suspect]
     Indication: ANALGESIC THERAPY
     Dosage: 100 UG, UNK
  14. FENTANYL [Suspect]
     Dosage: 50 UG, UNK
  15. WELLBUTRIN [Suspect]
  16. LEVOTHYROXINE [Concomitant]
     Dosage: UNK
  17. CLONAZEPAM [Concomitant]
     Dosage: UNK
  18. ONDANSETRON [Suspect]
     Dosage: 4 MG, UNK
  19. MULTI-VITAMINS [Concomitant]
     Dosage: UNK
  20. FLUDROCORTISONE [Concomitant]
     Dosage: UNK
  21. PAXIL [Suspect]
     Dosage: UNK
  22. FENTANYL [Suspect]
     Dosage: 100 G, UNK
  23. CYMBALTA [Suspect]
     Dosage: UNK

REACTIONS (1)
  - SEROTONIN SYNDROME [None]
